FAERS Safety Report 15931037 (Version 1)
Quarter: 2019Q1

REPORT INFORMATION
  Report Type: Spontaneous
  Country: US (occurrence: US)
  Receive Date: 20190115
  Receipt Date: 20190115
  Transmission Date: 20190417
  Serious: No
  Sender: FDA-Public Use
  Company Number: None

PATIENT
  Age: 64 Year
  Sex: Male

DRUGS (1)
  1. JADENU [Suspect]
     Active Substance: DEFERASIROX
     Dates: start: 201812

REACTIONS (3)
  - Therapy change [None]
  - Decreased activity [None]
  - Diarrhoea [None]

NARRATIVE: CASE EVENT DATE: 20190115
